FAERS Safety Report 10853633 (Version 3)
Quarter: 2018Q4

REPORT INFORMATION
  Report Type: Spontaneous
  Country: US (occurrence: US)
  Receive Date: 20150223
  Receipt Date: 20181226
  Transmission Date: 20190204
  Serious: No
  Sender: FDA-Public Use
  Company Number: US-PFIZER INC-2015063320

PATIENT
  Age: 67 Year
  Sex: Female

DRUGS (9)
  1. MORPHINE SULFATE. [Suspect]
     Active Substance: MORPHINE SULFATE
     Dosage: UNK
  2. DARVOCET A500 [Suspect]
     Active Substance: ACETAMINOPHEN\PROPOXYPHENE NAPSYLATE
  3. CELEBREX [Suspect]
     Active Substance: CELECOXIB
     Dosage: UNK
  4. PREMARIN [Suspect]
     Active Substance: ESTROGENS, CONJUGATED
     Dosage: UNK
  5. MONISTAT 3 [Suspect]
     Active Substance: MICONAZOLE NITRATE
  6. CODEINE [Suspect]
     Active Substance: CODEINE
  7. TRICOR [Suspect]
     Active Substance: FENOFIBRATE
     Dosage: UNK
  8. PRAVACHOL [Suspect]
     Active Substance: PRAVASTATIN SODIUM
     Dosage: UNK
  9. SKELAXIN [Suspect]
     Active Substance: METAXALONE

REACTIONS (2)
  - Pruritus [Unknown]
  - Drug hypersensitivity [Unknown]
